FAERS Safety Report 6497011-1 (Version None)
Quarter: 2009Q4

REPORT INFORMATION
  Report Type: 
  Country: None (occurrence: None)
  Receive Date: 20091215
  Receipt Date: 20090309
  Transmission Date: 20100525
  Serious: Yes (Disabling)
  Sender: FDA-Public Use
  Company Number: A0761694A

PATIENT
  Age: 40 Year
  Sex: Male

DRUGS (3)
  1. AVODART [Suspect]
     Indication: BENIGN PROSTATIC HYPERPLASIA
     Dosage: 1CAP PER DAY
     Route: 048
     Dates: start: 20070101, end: 20081219
  2. NEXIUM [Concomitant]
  3. HUMALOG [Concomitant]

REACTIONS (2)
  - LIP SWELLING [None]
  - URTICARIA [None]
